FAERS Safety Report 7701420-X (Version None)
Quarter: 2011Q3

REPORT INFORMATION
  Report Type: 
  Country: None (occurrence: None)
  Receive Date: 20110819
  Receipt Date: 20110819
  Transmission Date: 20111222
  Serious: No
  Sender: FDA-Public Use
  Company Number: None

PATIENT
  Age: 68 Year
  Sex: Male
  Weight: 118.3 kg

DRUGS (2)
  1. SUCCINYLCHOLINE CHLORIDE [Suspect]
     Indication: SURGERY
     Dosage: 100 MG ONCE IV
     Route: 042
     Dates: start: 20110624, end: 20110624
  2. ROCURONIUM BROMIDE [Suspect]
     Indication: SURGERY
     Dosage: 30 MG ONCE IV
     Route: 042
     Dates: start: 20110624, end: 20110624

REACTIONS (3)
  - HYPERTENSION [None]
  - APNOEA [None]
  - NEUROMUSCULAR BLOCK PROLONGED [None]
